FAERS Safety Report 8824360 (Version 1)
Quarter: 2012Q4

REPORT INFORMATION
  Report Type: 
  Country: US (occurrence: US)
  Receive Date: 20121004
  Receipt Date: 20121004
  Transmission Date: 20130627
  Serious: Yes (Hospitalization)
  Sender: FDA-Public Use
  Company Number: US-BAYER-2012-102131

PATIENT
  Age: 31 Year

DRUGS (3)
  1. YASMIN [Suspect]
     Dosage: UNK
     Dates: start: 20030401, end: 20040107
  2. AZITHROMYCIN [Concomitant]
  3. NORCO [Concomitant]

REACTIONS (6)
  - Pulmonary embolism [None]
  - Pulmonary infarction [None]
  - Atelectasis [None]
  - Pleural effusion [None]
  - Chest pain [None]
  - Dyspnoea [None]
